FAERS Safety Report 4850402-4 (Version None)
Quarter: 2005Q4

REPORT INFORMATION
  Report Type: 
  Country: None (occurrence: None)
  Receive Date: 20051123
  Receipt Date: 20050928
  Transmission Date: 20060501
  Serious: No
  Sender: FDA-Public Use
  Company Number: TPA2005A01141

PATIENT
  Age: 43 Year
  Sex: Female
  Weight: 56.6996 kg

DRUGS (2)
  1. ROZEREM [Suspect]
     Indication: FIBROMYALGIA
     Dosage: 8 MG, HS, PER ORAL
     Route: 048
     Dates: start: 20050921, end: 20050922
  2. ROZEREM [Suspect]
     Indication: INSOMNIA
     Dosage: 8 MG, HS, PER ORAL
     Route: 048
     Dates: start: 20050921, end: 20050922

REACTIONS (2)
  - ANXIETY [None]
  - EXCITABILITY [None]
